FAERS Safety Report 16983276 (Version 2)
Quarter: 2019Q4

REPORT INFORMATION
  Report Type: Spontaneous
  Country: BR (occurrence: BR)
  Receive Date: 20191101
  Receipt Date: 20191127
  Transmission Date: 20200122
  Serious: Yes (Hospitalization, Other)
  Sender: FDA-Public Use
  Company Number: BR-JNJFOC-20191037474

PATIENT
  Age: 67 Year
  Sex: Male
  Weight: 56 kg

DRUGS (8)
  1. AAS [Concomitant]
     Active Substance: ASPIRIN
  2. REMICADE [Suspect]
     Active Substance: INFLIXIMAB
     Indication: PRODUCT USED FOR UNKNOWN INDICATION
     Route: 042
     Dates: start: 20191021
  3. PREDNISONE. [Concomitant]
     Active Substance: PREDNISONE
  4. CALCIUM CARBONATE. [Concomitant]
     Active Substance: CALCIUM CARBONATE
  5. FOLIC ACID. [Concomitant]
     Active Substance: FOLIC ACID
  6. ISONIAZID. [Concomitant]
     Active Substance: ISONIAZID
  7. ALUMINUM HYDROXIDE                 /00057401/ [Concomitant]
     Active Substance: ALUMINUM HYDROXIDE
  8. IMOSEC [Suspect]
     Active Substance: LOPERAMIDE
     Indication: DIARRHOEA
     Route: 048

REACTIONS (4)
  - Urinary tract infection [Unknown]
  - Weight increased [Unknown]
  - Surgery [Unknown]
  - Swelling [Unknown]

NARRATIVE: CASE EVENT DATE: 201905
